FAERS Safety Report 9778850 (Version 1)
Quarter: 2013Q4

REPORT INFORMATION
  Report Type: Spontaneous
  Country: FR (occurrence: FR)
  Receive Date: 20131223
  Receipt Date: 20131223
  Transmission Date: 20140711
  Serious: Yes (Hospitalization, Other)
  Sender: FDA-Public Use
  Company Number: FR-PFIZER INC-2013360245

PATIENT
  Age: 9 Year
  Sex: Male
  Weight: 41 kg

DRUGS (2)
  1. ADVIL [Suspect]
     Indication: HEADACHE
     Dosage: 1 DF, SINGLE
     Route: 048
     Dates: start: 20121212, end: 20121212
  2. PARACETAMOL [Suspect]
     Indication: HEADACHE
     Dosage: 1 DF, SINGLE
     Route: 048
     Dates: start: 20121211, end: 20121211

REACTIONS (6)
  - Stevens-Johnson syndrome [Recovered/Resolved with Sequelae]
  - Pulmonary embolism [Unknown]
  - Mycoplasma infection [Recovered/Resolved]
  - Obstructive airways disorder [Unknown]
  - Heparin-induced thrombocytopenia test positive [Unknown]
  - Post-traumatic stress disorder [Unknown]
